FAERS Safety Report 9809179 (Version 1)
Quarter: 2014Q1

REPORT INFORMATION
  Report Type: Spontaneous
  Country: US (occurrence: US)
  Receive Date: 20140110
  Receipt Date: 20140110
  Transmission Date: 20141002
  Serious: Yes (Death)
  Sender: FDA-Public Use
  Company Number: US-PFIZER INC-2014004986

PATIENT
  Age: 34 Year
  Sex: Male

DRUGS (6)
  1. OXYCODONE HYDROCHLORIDE [Suspect]
  2. ALPRAZOLAM [Suspect]
  3. DEXTROMETHORPHAN HBR [Suspect]
  4. HYDROCODONE [Suspect]
  5. CYCLOBENZAPRINE [Suspect]
  6. BUPROPION [Suspect]

REACTIONS (1)
  - Drug abuse [Fatal]
